FAERS Safety Report 9000423 (Version 1)
Quarter: 2013Q1

REPORT INFORMATION
  Report Type: Spontaneous
  Country: US (occurrence: None)
  Receive Date: 20130102
  Receipt Date: 20130102
  Transmission Date: 20140127
  Serious: No
  Sender: FDA-Public Use
  Company Number: None

PATIENT
  Age: 56 Year
  Sex: Female
  Weight: 79.5 kg

DRUGS (1)
  1. SACCHARIN SODIUM [Suspect]
     Indication: NUTRITIONAL SUPPLEMENTATION
     Dates: start: 20111204, end: 20111204

REACTIONS (2)
  - Angioedema [None]
  - Lip swelling [None]
